FAERS Safety Report 16279061 (Version 1)
Quarter: 2019Q2

REPORT INFORMATION
  Report Type: Spontaneous
  Country: DE (occurrence: DE)
  Receive Date: 20190506
  Receipt Date: 20190506
  Transmission Date: 20190711
  Serious: Yes (Hospitalization)
  Sender: FDA-Public Use
  Company Number: DE-ELI_LILLY_AND_COMPANY-DE201904012667

PATIENT
  Age: 82 Year
  Sex: Female

DRUGS (11)
  1. NOVAMIN [METAMIZOLE SODIUM] [Concomitant]
     Indication: OSTEOARTHRITIS
     Dosage: 30 UNK, UNKNOWN
     Route: 065
     Dates: start: 20170105
  2. BISOPROLOL [Concomitant]
     Active Substance: BISOPROLOL
     Indication: PRODUCT USED FOR UNKNOWN INDICATION
     Dosage: DAILY DOSE: 5 MG MILLGRAM(S) EVERY DAYS
  3. OLUMIANT [Suspect]
     Active Substance: BARICITINIB
     Indication: RHEUMATOID ARTHRITIS
     Dosage: DAILY DOSE: 2 MG MILLGRAM(S) EVERY DAYS
     Route: 048
     Dates: start: 20190218, end: 20190323
  4. OMEPRAZOLE. [Concomitant]
     Active Substance: OMEPRAZOLE
     Indication: PRODUCT USED FOR UNKNOWN INDICATION
     Dosage: DAILY DOSE: 20 MG MILLGRAM(S) EVERY DAYS
     Route: 065
  5. PREDNISOLON [PREDNISOLONE ACETATE] [Concomitant]
     Indication: RHEUMATOID ARTHRITIS
     Dosage: DAILY DOSE: 5 MG MILLGRAM(S) EVERY DAYS
     Route: 048
     Dates: start: 20170216
  6. PALEXIA [Concomitant]
     Active Substance: TAPENTADOL HYDROCHLORIDE
     Indication: OSTEOARTHRITIS
     Dosage: DAILY DOSE: 150 MG MILLGRAM(S) EVERY DAYS
     Route: 048
     Dates: start: 20170128
  7. CANDESARTAN. [Concomitant]
     Active Substance: CANDESARTAN
     Indication: PRODUCT USED FOR UNKNOWN INDICATION
     Dosage: DAILY DOSE: 8 MG MILLGRAM(S) EVERY DAYS
  8. GLIBENCLAMID [Concomitant]
     Active Substance: GLYBURIDE
     Indication: PRODUCT USED FOR UNKNOWN INDICATION
     Dosage: DAILY DOSE: 1.75 MG MILLGRAM(S) EVERY DAYS
     Route: 065
  9. EMSELEX [DARIFENACIN HYDROBROMIDE] [Concomitant]
     Indication: PRODUCT USED FOR UNKNOWN INDICATION
     Dosage: DAILY DOSE: 22.5 MG MILLGRAM(S) EVERY WEEKS
     Route: 065
  10. DEKRISTOL [Concomitant]
     Active Substance: CHOLECALCIFEROL
     Indication: PRODUCT USED FOR UNKNOWN INDICATION
     Dosage: DAILY DOSE: 20000 IU INTERNATIONAL UNIT(S) EVERY 2 WEEKS
     Route: 065
  11. ASPIRIN. [Concomitant]
     Active Substance: ASPIRIN
     Indication: PRODUCT USED FOR UNKNOWN INDICATION
     Dosage: DAILY DOSE: 100 MG MILLGRAM(S) EVERY DAYS

REACTIONS (3)
  - Lower gastrointestinal haemorrhage [Recovering/Resolving]
  - Diverticulitis [Recovering/Resolving]
  - Colitis [Recovering/Resolving]

NARRATIVE: CASE EVENT DATE: 20190323
